FAERS Safety Report 4349023-1 (Version None)
Quarter: 2004Q2

REPORT INFORMATION
  Report Type: 
  Country: None (occurrence: None)
  Receive Date: 20040421
  Receipt Date: 20040407
  Transmission Date: 20050107
  Serious: Yes (Other)
  Sender: FDA-Public Use
  Company Number: HQWYE524603MAR04

PATIENT
  Age: 28 Year
  Sex: Male

DRUGS (2)
  1. BENEFIX [Suspect]
     Indication: FACTOR IX DEFICIENCY
     Dosage: 5000 IU 2X PER 1 WK
     Route: 042
     Dates: start: 20040211, end: 20040212
  2. BENEFIX [Suspect]
     Indication: FACTOR IX DEFICIENCY
     Dosage: 5000 IU 2X PER 1 WK
     Route: 042
     Dates: start: 20040217, end: 20040218

REACTIONS (4)
  - ABDOMINAL PAIN [None]
  - BLOOD ALKALINE PHOSPHATASE INCREASED [None]
  - FEELING ABNORMAL [None]
  - HYPERSENSITIVITY [None]
